FAERS Safety Report 7623872-6 (Version None)
Quarter: 2011Q3

REPORT INFORMATION
  Report Type: 
  Country: None (occurrence: None)
  Receive Date: 20110720
  Receipt Date: 20110708
  Transmission Date: 20111222
  Serious: Yes (Death)
  Sender: FDA-Public Use
  Company Number: DK-JNJFOC-20110405162

PATIENT
  Sex: Male
  Weight: 26 kg

DRUGS (9)
  1. MYDRIACYL [Concomitant]
     Indication: UVEITIS
     Route: 065
     Dates: end: 20110309
  2. COSOPT [Concomitant]
     Indication: GLAUCOMA
     Route: 065
     Dates: end: 20110309
  3. XALATAN [Concomitant]
     Indication: UVEITIS
     Route: 065
     Dates: end: 20110309
  4. COSOPT [Concomitant]
     Indication: UVEITIS
     Route: 065
     Dates: end: 20110309
  5. REMICADE [Suspect]
     Indication: UVEITIS
     Dosage: STRENGTH 100 MG, INITIATED 5 MONTHS AGO
     Route: 042
     Dates: start: 20101027, end: 20110204
  6. PREDNISOLONE [Concomitant]
     Indication: INTRAOCULAR PRESSURE INCREASED
     Dates: start: 20100801, end: 20101210
  7. PREDNISOLONE [Concomitant]
     Indication: UVEITIS
     Dates: start: 20100801, end: 20101210
  8. METHOTREXATE [Concomitant]
     Indication: UVEITIS
  9. XALATAN [Concomitant]
     Indication: GLAUCOMA
     Route: 065
     Dates: end: 20110309

REACTIONS (2)
  - ENCEPHALITIS [None]
  - PNEUMONIA HERPES VIRAL [None]
